FAERS Safety Report 8227070-7 (Version None)
Quarter: 2012Q1

REPORT INFORMATION
  Report Type: 
  Country: None (occurrence: None)
  Receive Date: 20120322
  Receipt Date: 20120320
  Transmission Date: 20120608
  Serious: No
  Sender: FDA-Public Use
  Company Number: US-PFIZER INC-2012073636

PATIENT
  Sex: Female
  Weight: 62.132 kg

DRUGS (4)
  1. PRAVASTATIN SODIUM [Concomitant]
     Indication: HYPERTENSION
     Dosage: 10 MG, DAILY
  2. CHANTIX [Suspect]
     Indication: SMOKING CESSATION THERAPY
     Dosage: 0.5 MG, DAILY
     Dates: start: 20120305, end: 20120301
  3. CHLORTHALIDONE [Concomitant]
     Indication: BLOOD CHOLESTEROL ABNORMAL
     Dosage: UNK TAKING HALF A TABLET OF 25MG DAILY
  4. CHANTIX [Suspect]
     Dosage: 1 MG, 2X/DAY
     Dates: start: 20120301

REACTIONS (3)
  - INSOMNIA [None]
  - RESTLESSNESS [None]
  - ABNORMAL DREAMS [None]
